FAERS Safety Report 22103027 (Version 1)
Quarter: 2023Q1

REPORT INFORMATION
  Report Type: Spontaneous
  Country: US (occurrence: US)
  Receive Date: 20230316
  Receipt Date: 20230316
  Transmission Date: 20230418
  Serious: Yes (Other)
  Sender: FDA-Public Use
  Company Number: US-BAYER-2020-243845

PATIENT
  Sex: Female

DRUGS (1)
  1. MIRENA [Suspect]
     Active Substance: LEVONORGESTREL
     Indication: Contraception
     Dosage: 20?G/DAY
     Route: 015

REACTIONS (5)
  - Pregnancy with contraceptive device [Recovered/Resolved]
  - Abortion spontaneous [None]
  - Ovarian cyst [None]
  - Idiopathic intracranial hypertension [None]
  - Drug ineffective [None]
